FAERS Safety Report 7041746-9 (Version None)
Quarter: 2010Q4

REPORT INFORMATION
  Report Type: 
  Country: None (occurrence: None)
  Receive Date: 20101013
  Receipt Date: 20100305
  Transmission Date: 20110411
  Serious: No
  Sender: FDA-Public Use
  Company Number: US-ASTRAZENECA-2010SE09736

PATIENT
  Age: 60 Year
  Sex: Male

DRUGS (1)
  1. SYMBICORT [Suspect]
     Dosage: TOTAL DAILY DOSE: 80 UG, ONE PUFFS
     Route: 055
     Dates: start: 20091201

REACTIONS (3)
  - COUGH [None]
  - DRUG DOSE OMISSION [None]
  - INCREASED UPPER AIRWAY SECRETION [None]
